FAERS Safety Report 5012754-4 (Version None)
Quarter: 2006Q2

REPORT INFORMATION
  Report Type: 
  Country: None (occurrence: None)
  Receive Date: 20060530
  Receipt Date: 20060127
  Transmission Date: 20061013
  Serious: Yes (Other)
  Sender: FDA-Public Use
  Company Number: US-BRISTOL-MYERS SQUIBB COMPANY-13262142

PATIENT
  Age: 74 Year
  Sex: Female
  Weight: 75 kg

DRUGS (8)
  1. ERBITUX [Suspect]
     Indication: COLON CANCER
     Route: 042
     Dates: start: 20060117, end: 20060117
  2. DIPHENHYDRAMINE HCL [Concomitant]
     Indication: PREMEDICATION
     Route: 042
     Dates: start: 20060117, end: 20060117
  3. ALOXI [Concomitant]
     Indication: PREMEDICATION
     Dates: start: 20060117, end: 20060117
  4. DECADRON SRC [Concomitant]
     Indication: PREMEDICATION
     Dates: start: 20060117, end: 20060117
  5. CAMPTOSAR [Concomitant]
     Dates: start: 20060117, end: 20060117
  6. TOPROL-XL [Concomitant]
     Route: 048
  7. SPIRONOLACTONE [Concomitant]
  8. LORAZEPAM [Concomitant]
     Indication: NAUSEA
     Dosage: 1-2 TABS EVERY 4 HRS PRN
     Route: 048

REACTIONS (2)
  - CONJUNCTIVITIS [None]
  - NEUTROPHIL COUNT DECREASED [None]
